FAERS Safety Report 5676553-2 (Version None)
Quarter: 2008Q1

REPORT INFORMATION
  Report Type: 
  Country: None (occurrence: None)
  Receive Date: 20080321
  Receipt Date: 20080321
  Transmission Date: 20080703
  Serious: Yes (Other)
  Sender: FDA-Public Use
  Company Number: None

PATIENT
  Age: 64 Year
  Sex: Female
  Weight: 131.5431 kg

DRUGS (2)
  1. CIPRO [Suspect]
     Indication: ANIMAL BITE
     Dosage: 36 HRS - ONE EVERY 12 HRS
  2. CIPRO [Suspect]
     Indication: CYSTITIS
     Dosage: 36 HRS - ONE EVERY 12 HRS

REACTIONS (2)
  - ARTHRALGIA [None]
  - JOINT SPRAIN [None]
